FAERS Safety Report 7556852-X (Version None)
Quarter: 2011Q2

REPORT INFORMATION
  Report Type: 
  Country: None (occurrence: None)
  Receive Date: 20110620
  Receipt Date: 20110615
  Transmission Date: 20111010
  Serious: Yes (Other)
  Sender: FDA-Public Use
  Company Number: IN-PFIZER INC-2011131298

PATIENT
  Age: 5 Year
  Sex: Male

DRUGS (6)
  1. RIFAMPICIN [Suspect]
     Indication: MENINGITIS TUBERCULOUS
     Dosage: 10 MG/KG/DAY
     Route: 048
  2. ETHAMBUTOL [Suspect]
     Indication: MENINGITIS TUBERCULOUS
     Dosage: 20 MG/KG/DAY
     Route: 048
  3. PHENYTOIN [Concomitant]
     Dosage: 10 MG/KG, 1X/DAY
  4. PREDNISOLONE [Concomitant]
     Dosage: 2 MG/KG, 1X/DAY
  5. ISONIAZID [Suspect]
     Indication: MENINGITIS TUBERCULOUS
     Dosage: 5 MG/KG/DAY
     Route: 048
  6. PYRAZINAMIDE [Suspect]
     Indication: MENINGITIS TUBERCULOUS
     Dosage: 25 MG/KG/DAY
     Route: 048

REACTIONS (2)
  - OPTIC NEURITIS [None]
  - PARADOXICAL DRUG REACTION [None]
